FAERS Safety Report 5765390-6 (Version None)
Quarter: 2008Q2

REPORT INFORMATION
  Report Type: 
  Country: None (occurrence: None)
  Receive Date: 20080611
  Receipt Date: 20080602
  Transmission Date: 20081010
  Serious: Yes (Other)
  Sender: FDA-Public Use
  Company Number: ES-ELI_LILLY_AND_COMPANY-ES200806001150

PATIENT
  Age: 44 Year
  Sex: Female

DRUGS (7)
  1. PROZAC [Suspect]
     Dosage: 20 MG, UNK
     Route: 048
     Dates: start: 20060101, end: 20080201
  2. BENEXOL B1 B6 B12 [Concomitant]
     Route: 048
  3. OXCARBAZEPINE [Concomitant]
     Indication: DEPRESSION
     Dosage: 300 MG, UNK
     Route: 048
     Dates: start: 20071201, end: 20080214
  4. LEGALON [Concomitant]
     Dosage: 150 MG, UNK
     Route: 048
  5. LEVOTHROID [Concomitant]
     Dosage: 50 MG, UNK
     Route: 048
  6. RIVOTRIL [Concomitant]
     Dosage: 0.5 MG, UNK
     Route: 048
  7. SEROQUEL [Concomitant]
     Dosage: 100 MG, UNK
     Route: 048
     Dates: start: 20060101, end: 20080201

REACTIONS (1)
  - HYPERNATRAEMIA [None]
